FAERS Safety Report 12124464 (Version 1)
Quarter: 2016Q1

REPORT INFORMATION
  Report Type: Spontaneous
  Country: FR (occurrence: FR)
  Receive Date: 20160229
  Receipt Date: 20160229
  Transmission Date: 20160526
  Serious: Yes (Other)
  Sender: FDA-Public Use
  Company Number: FR-ROCHE-1716486

PATIENT
  Age: 64 Year
  Sex: Female

DRUGS (5)
  1. FORADIL [Concomitant]
     Active Substance: FORMOTEROL FUMARATE
  2. METHOTREXATE [Suspect]
     Active Substance: METHOTREXATE
     Indication: RHEUMATOID ARTHRITIS
     Route: 065
     Dates: start: 2009, end: 2011
  3. FLECAINE [Concomitant]
     Active Substance: FLECAINIDE
  4. MIFLASONE [Concomitant]
     Active Substance: BECLOMETHASONE DIPROPIONATE
  5. ROACTEMRA [Suspect]
     Active Substance: TOCILIZUMAB
     Indication: RHEUMATOID ARTHRITIS
     Route: 042
     Dates: start: 20120123, end: 20151221

REACTIONS (1)
  - Lung adenocarcinoma [Not Recovered/Not Resolved]

NARRATIVE: CASE EVENT DATE: 201511
